FAERS Safety Report 7815275-6 (Version None)
Quarter: 2011Q4

REPORT INFORMATION
  Report Type: 
  Country: None (occurrence: None)
  Receive Date: 20111014
  Receipt Date: 20111005
  Transmission Date: 20120403
  Serious: Yes (Hospitalization, Other)
  Sender: FDA-Public Use
  Company Number: US-ACTELION-A-US2011-55141

PATIENT

DRUGS (1)
  1. TRACLEER [Suspect]
     Indication: PULMONARY ARTERIAL HYPERTENSION
     Dosage: UNK
     Route: 048
     Dates: start: 20090201

REACTIONS (5)
  - DRUG ADMINISTRATION ERROR [None]
  - SHOULDER OPERATION [None]
  - JOINT SWELLING [None]
  - COLON OPERATION [None]
  - FEELING HOT [None]
